FAERS Safety Report 8823313 (Version 3)
Quarter: 2012Q4

REPORT INFORMATION
  Report Type: 
  Country: US (occurrence: US)
  Receive Date: 20121003
  Receipt Date: 20121106
  Transmission Date: 20130627
  Serious: Yes (Death, Hospitalization, Other)
  Sender: FDA-Public Use
  Company Number: US-CELGENEUS-163-21880-12100178

PATIENT
  Age: 69 Year
  Sex: Female
  Weight: 48.12 kg

DRUGS (29)
  1. REVLIMID [Suspect]
     Indication: MULTIPLE MYELOMA
     Dosage: 5 Milligram
     Route: 048
     Dates: start: 20110702, end: 201204
  2. ACYCLOVIR [Concomitant]
     Indication: DRUG USE FOR UNKNOWN INDICATION
     Dosage: 800 Milligram
     Route: 048
  3. CALCIUM + VITAMIN D [Concomitant]
     Indication: DRUG USE FOR UNKNOWN INDICATION
     Dosage: 400-133.3
     Route: 048
  4. CELEBREX [Concomitant]
     Indication: DRUG USE FOR UNKNOWN INDICATION
     Dosage: 200 Milligram
     Route: 048
  5. CITALOPRAM [Concomitant]
     Indication: DRUG USE FOR UNKNOWN INDICATION
     Dosage: 20 Milligram
     Route: 048
  6. DEXAMETHASONE [Concomitant]
     Indication: DRUG USE FOR UNKNOWN INDICATION
     Dosage: 40 Milligram
     Route: 048
     Dates: start: 201107, end: 201207
  7. DEXAMETHASONE [Concomitant]
     Dosage: 20 Milligram
     Route: 048
     Dates: start: 201207, end: 201208
  8. GUAIFENESIN-CODEINE [Concomitant]
     Indication: DRUG USE FOR UNKNOWN INDICATION
     Dosage: 100-10 mg/5
     Route: 048
  9. MULTIVITAMINS [Concomitant]
     Indication: DRUG USE FOR UNKNOWN INDICATION
     Dosage: 1 Tablet
     Route: 048
  10. SYNTHROID [Concomitant]
     Indication: DRUG USE FOR UNKNOWN INDICATION
     Dosage: 75 Microgram
     Route: 048
  11. COUMADIN [Concomitant]
     Indication: ANTICOAGULANT THERAPY
     Route: 065
     Dates: end: 200806
  12. PLATELETS [Concomitant]
     Indication: PLATELET COUNT DECREASED
     Route: 065
     Dates: end: 200806
  13. ACETAMINOPHEN [Concomitant]
     Indication: DRUG USE FOR UNKNOWN INDICATION
     Dosage: 650 Milligram
     Route: 054
     Dates: start: 20120818, end: 20120818
  14. DESMOPRESSIN [Concomitant]
     Indication: DRUG USE FOR UNKNOWN INDICATION
     Dosage: 8 Microgram
     Route: 041
     Dates: start: 20120818, end: 20120818
  15. ETOMIDATE [Concomitant]
     Indication: DRUG USE FOR UNKNOWN INDICATION
     Dosage: 20 Milligram
     Route: 041
     Dates: start: 20120818, end: 20120818
  16. MANNITOL [Concomitant]
     Indication: DRUG USE FOR UNKNOWN INDICATION
     Dosage: 241 milliliter
     Route: 041
     Dates: start: 20120818, end: 20120818
  17. MIDAZOLAM [Concomitant]
     Indication: DRUG USE FOR UNKNOWN INDICATION
     Dosage: 4 Milligram
     Route: 041
     Dates: start: 20120818, end: 20120818
  18. NACL [Concomitant]
     Indication: DRUG USE FOR UNKNOWN INDICATION
     Dosage: 125 milliliter
     Route: 041
     Dates: start: 20120818, end: 20120818
  19. NACL [Concomitant]
     Dosage: 50 milliliter
     Route: 041
     Dates: start: 20120818, end: 20120818
  20. NACL [Concomitant]
     Dosage: 25 milliliter
     Route: 041
     Dates: start: 20120818, end: 20120818
  21. NACL [Concomitant]
     Dosage: 10 milliliter
     Route: 041
     Dates: start: 20120818, end: 20120818
  22. ONDANSETRON [Concomitant]
     Indication: DRUG USE FOR UNKNOWN INDICATION
     Dosage: 4 Milligram
     Route: 041
     Dates: start: 20120818, end: 20120818
  23. SUCCINYLCHOLINE [Concomitant]
     Indication: DRUG USE FOR UNKNOWN INDICATION
     Dosage: 100 Milligram
     Route: 041
     Dates: start: 20120818, end: 20120818
  24. ARTIFICIAL TEARS [Concomitant]
     Indication: DRUG USE FOR UNKNOWN INDICATION
     Dosage: 2 drops both eyes
     Route: 060
     Dates: start: 20120818, end: 20120818
  25. ATROPINE [Concomitant]
     Indication: DRUG USE FOR UNKNOWN INDICATION
     Dosage: 1-4 drops both eyes
     Route: 060
     Dates: start: 20120818, end: 20120818
  26. FAMOTIDINE [Concomitant]
     Indication: DRUG USE FOR UNKNOWN INDICATION
     Dosage: 20 Milligram
     Route: 041
     Dates: start: 20120818, end: 20120818
  27. MORPHINE [Concomitant]
     Indication: DRUG USE FOR UNKNOWN INDICATION
     Dosage: 1-2mg
     Route: 041
     Dates: start: 201208, end: 201208
  28. MORPHINE [Concomitant]
     Dosage: 2-6mg
     Route: 041
     Dates: start: 201208, end: 201208
  29. NICARDIPINE [Concomitant]
     Indication: DRUG USE FOR UNKNOWN INDICATION
     Dosage: 2.5-15mg
     Route: 041
     Dates: start: 201208, end: 201208

REACTIONS (4)
  - Subdural haematoma [Fatal]
  - Fall [Unknown]
  - Thrombocytopenia [Unknown]
  - Anaemia [Unknown]
